FAERS Safety Report 16924145 (Version 1)
Quarter: 2019Q4

REPORT INFORMATION
  Report Type: Spontaneous
  Country: CA (occurrence: CA)
  Receive Date: 20191015
  Receipt Date: 20191015
  Transmission Date: 20200122
  Serious: No
  Sender: FDA-Public Use
  Company Number: None

PATIENT
  Age: 29 Year
  Sex: Female
  Weight: 50.85 kg

DRUGS (1)
  1. RESCUE REMEDY KIDS [Suspect]
     Active Substance: HOMEOPATHICS
     Indication: RELAXATION THERAPY
     Dosage: ?          OTHER STRENGTH:IT JUST SAYS ^5X^;QUANTITY:2 DROP(S);?
     Route: 048
     Dates: start: 20191015, end: 20191015

REACTIONS (5)
  - Fatigue [None]
  - Abnormal dreams [None]
  - Choking [None]
  - Nightmare [None]
  - Somnolence [None]

NARRATIVE: CASE EVENT DATE: 20191015
